FAERS Safety Report 22294492 (Version 1)
Quarter: 2023Q2

REPORT INFORMATION
  Report Type: Report from Study
  Country: US (occurrence: US)
  Receive Date: 20230508
  Receipt Date: 20230508
  Transmission Date: 20230721
  Serious: Yes (Hospitalization, Other)
  Sender: FDA-Public Use
  Company Number: US-GSKCCFUS-Case-01691939_AE-95464

PATIENT

DRUGS (2)
  1. BELIMUMAB [Suspect]
     Active Substance: BELIMUMAB
     Indication: Product used for unknown indication
     Dosage: 1 DF
     Dates: start: 20230421
  2. GRANIX [Concomitant]
     Active Substance: TBO-FILGRASTIM
     Indication: White blood cell count increased
     Dosage: UNK

REACTIONS (7)
  - Pyrexia [Unknown]
  - Sepsis [Recovered/Resolved]
  - Hypotension [Unknown]
  - Cholecystitis infective [Recovered/Resolved]
  - White blood cell count decreased [Recovered/Resolved]
  - Neutropenia [Recovered/Resolved]
  - Heart rate increased [Unknown]

NARRATIVE: CASE EVENT DATE: 20230421
